FAERS Safety Report 4655460-8 (Version None)
Quarter: 2005Q2

REPORT INFORMATION
  Report Type: 
  Country: None (occurrence: None)
  Receive Date: 20050505
  Receipt Date: 20050419
  Transmission Date: 20051028
  Serious: Yes (Other)
  Sender: FDA-Public Use
  Company Number: US_0412109203

PATIENT
  Age: 44 Year
  Sex: Female

DRUGS (5)
  1. HUMALOG [Suspect]
  2. HUMULIN N [Suspect]
  3. MAVIK [Concomitant]
  4. ENOXIN (ENOXACIN) [Concomitant]
  5. VERELAN (VERAPAMIL HYDROCHLORIDE) [Concomitant]

REACTIONS (16)
  - AUTONOMIC NEUROPATHY [None]
  - CERVICAL MYELOPATHY [None]
  - CONTUSION [None]
  - EXCORIATION [None]
  - INTERVERTEBRAL DISC PROTRUSION [None]
  - LOSS OF CONSCIOUSNESS [None]
  - NERVE COMPRESSION [None]
  - NEUROGLYCOPENIA [None]
  - PHARYNGOLARYNGEAL PAIN [None]
  - REFLEXES ABNORMAL [None]
  - RETROGRADE AMNESIA [None]
  - RHINORRHOEA [None]
  - ROAD TRAFFIC ACCIDENT [None]
  - SPINAL OSTEOARTHRITIS [None]
  - TACHYCARDIA [None]
  - UPPER RESPIRATORY TRACT INFECTION [None]
